FAERS Safety Report 9449857 (Version 3)
Quarter: 2013Q4

REPORT INFORMATION
  Report Type: Report from Study
  Country: US (occurrence: US)
  Receive Date: 20130809
  Receipt Date: 20131002
  Transmission Date: 20140711
  Serious: Yes (Other)
  Sender: FDA-Public Use
  Company Number: US-NAPPMUNDI-USA-2013-0105117

PATIENT
  Age: 51 Year
  Sex: Female

DRUGS (1)
  1. OXYCONTIN (NDA 22-272) [Suspect]
     Indication: PAIN
     Dosage: 80 MG, Q12H
     Route: 048
     Dates: start: 20120905

REACTIONS (5)
  - Diabetes mellitus [Not Recovered/Not Resolved]
  - Cholecystitis [Unknown]
  - Gastroenteritis viral [Unknown]
  - Abdominal rigidity [Unknown]
  - Abdominal pain [Unknown]
